FAERS Safety Report 24144657 (Version 2)
Quarter: 2024Q3

REPORT INFORMATION
  Report Type: Report from Study
  Country: CO (occurrence: CO)
  Receive Date: 20240728
  Receipt Date: 20240816
  Transmission Date: 20241017
  Serious: Yes (Hospitalization)
  Sender: ABBVIE
  Company Number: CO-ABBVIE-5856288

PATIENT
  Sex: Female
  Weight: 66 kg

DRUGS (1)
  1. SKYRIZI [Suspect]
     Active Substance: RISANKIZUMAB-RZAA
     Indication: Psoriasis
     Dosage: FORM STRENGTH: 150 MG
     Route: 058
     Dates: start: 20240311, end: 20240411

REACTIONS (9)
  - Vulvovaginal pain [Recovering/Resolving]
  - Vulvovaginal burning sensation [Recovering/Resolving]
  - Helicobacter infection [Recovering/Resolving]
  - Urinary tract infection [Recovering/Resolving]
  - Abdominal discomfort [Recovering/Resolving]
  - Dysuria [Recovering/Resolving]
  - Chronic gastritis [Recovering/Resolving]
  - Pyrexia [Recovered/Resolved]
  - Asthenia [Unknown]

NARRATIVE: CASE EVENT DATE: 20240101
